FAERS Safety Report 17432788 (Version 1)
Quarter: 2020Q1

REPORT INFORMATION
  Report Type: Spontaneous
  Country: AU (occurrence: AU)
  Receive Date: 20200218
  Receipt Date: 20200218
  Transmission Date: 20200409
  Serious: Yes (Other)
  Sender: FDA-Public Use
  Company Number: AU-NALPROPION PHARMACEUTICALS INC.-2020-009604

PATIENT

DRUGS (2)
  1. CONTRAVE [Suspect]
     Active Substance: BUPROPION HYDROCHLORIDE\NALTREXONE HYDROCHLORIDE
     Indication: OBESITY
     Dosage: TWICE DAILY
     Route: 048
  2. DUROMINE [Suspect]
     Active Substance: PHENTERMINE
     Indication: OBESITY
     Dosage: UNK

REACTIONS (1)
  - Somnolence [Recovered/Resolved]
